FAERS Safety Report 9688767 (Version 1)
Quarter: 2013Q4

REPORT INFORMATION
  Report Type: Spontaneous
  Country: US (occurrence: US)
  Receive Date: 20131114
  Receipt Date: 20131114
  Transmission Date: 20140711
  Serious: Yes (Other)
  Sender: FDA-Public Use
  Company Number: US-PFIZER INC-2013316541

PATIENT
  Age: 41 Year
  Sex: Female
  Weight: 72.56 kg

DRUGS (2)
  1. CHAPSTICK LIPMOISTURIZER [Suspect]
     Indication: LIP DRY
     Dosage: UNK, AS NEEDED
  2. CHAPSTICK LIPMOISTURIZER [Suspect]
     Indication: CHAPPED LIPS

REACTIONS (4)
  - Aphagia [Unknown]
  - Chemical burn of gastrointestinal tract [Unknown]
  - Glossodynia [Unknown]
  - Feeling abnormal [Unknown]
